FAERS Safety Report 6072472-0 (Version None)
Quarter: 2009Q1

REPORT INFORMATION
  Report Type: 
  Country: None (occurrence: None)
  Receive Date: 20090210
  Receipt Date: 20090202
  Transmission Date: 20090719
  Serious: Yes (Hospitalization)
  Sender: FDA-Public Use
  Company Number: FR-ROCHE-612431

PATIENT
  Age: 62 Year
  Sex: Male

DRUGS (2)
  1. ROCEPHIN [Suspect]
     Route: 030
     Dates: start: 20081205, end: 20081209
  2. PRIMPERAN TAB [Concomitant]
     Route: 048
     Dates: start: 20081205

REACTIONS (3)
  - CYTOLYTIC HEPATITIS [None]
  - PYREXIA [None]
  - RASH [None]
